FAERS Safety Report 18575448 (Version 3)
Quarter: 2020Q4

REPORT INFORMATION
  Report Type: Spontaneous
  Country: CA (occurrence: CA)
  Receive Date: 20201203
  Receipt Date: 20201204
  Transmission Date: 20210114
  Serious: Yes (Other)
  Sender: FDA-Public Use
  Company Number: CA-JNJFOC-20201205390

PATIENT
  Sex: Female

DRUGS (4)
  1. INDOMETHACIN [INDOMETACIN] [Suspect]
     Active Substance: INDOMETHACIN
     Indication: CONGENITAL HEART VALVE DISORDER
     Dosage: 50-100 MG 3 TIMES DAILY
     Route: 065
  2. IBUPROFEN. [Suspect]
     Active Substance: IBUPROFEN
     Indication: CONGENITAL HEART VALVE DISORDER
  3. INDOMETHACIN [INDOMETACIN] [Suspect]
     Active Substance: INDOMETHACIN
     Indication: CONGENITAL TRICUSPID VALVE STENOSIS
     Dosage: 100 MG 2 TO 4 TIMES DAILY
     Route: 065
  4. IBUPROFEN. [Suspect]
     Active Substance: IBUPROFEN
     Indication: CONGENITAL TRICUSPID VALVE STENOSIS
     Dosage: 200 TO 600 MG 3 TO 4 TIMES DAILY
     Route: 065

REACTIONS (7)
  - Product use in unapproved indication [Unknown]
  - Premature labour [Unknown]
  - Oligohydramnios [Unknown]
  - Exposure during pregnancy [Unknown]
  - Therapeutic response unexpected [Unknown]
  - Off label use [Unknown]
  - Foetal death [Recovered/Resolved]
